FAERS Safety Report 18371719 (Version 1)
Quarter: 2020Q4

REPORT INFORMATION
  Report Type: Report from Study
  Country: NL (occurrence: NL)
  Receive Date: 20201012
  Receipt Date: 20201012
  Transmission Date: 20210114
  Serious: Yes (Other)
  Sender: FDA-Public Use
  Company Number: NL-MYLANLABS-2019M1076286

PATIENT
  Sex: Female

DRUGS (2)
  1. DEPAKINE                           /00228501/ [Concomitant]
     Active Substance: VALPROIC ACID
     Dosage: UNK
  2. GLATIRAMEERACETAAT MYLAN 40 MG/ML [Suspect]
     Active Substance: GLATIRAMER ACETATE
     Indication: MULTIPLE SCLEROSIS
     Dosage: 40 MILLIGRAM, 3XW
     Route: 058

REACTIONS (6)
  - Spinal fracture [Recovering/Resolving]
  - Inappropriate schedule of product administration [Unknown]
  - Fall [Recovering/Resolving]
  - Hyperhidrosis [Not Recovered/Not Resolved]
  - Nausea [Unknown]
  - Intentional product misuse [Unknown]

NARRATIVE: CASE EVENT DATE: 20190729
